FAERS Safety Report 10732076 (Version 2)
Quarter: 2015Q2

REPORT INFORMATION
  Report Type: Spontaneous
  Country: US (occurrence: None)
  Receive Date: 20150120
  Receipt Date: 20150414
  Transmission Date: 20150821
  Serious: Yes (Death)
  Sender: FDA-Public Use
  Company Number: 1713747-2015-99919

PATIENT
  Age: 59 Year
  Sex: Female
  Weight: 72.2 kg

DRUGS (13)
  1. GENTAMICIN. [Concomitant]
     Active Substance: GENTAMICIN
  2. NOVOLOG [Concomitant]
     Active Substance: INSULIN ASPART
  3. CLONIDINE. [Concomitant]
     Active Substance: CLONIDINE
  4. DULCOLAX [Concomitant]
     Active Substance: BISACODYL OR DOCUSATE SODIUM
  5. IPRATROPIUM-ALBUTEROL [Concomitant]
  6. METOPROLOL TARTRATE. [Concomitant]
     Active Substance: METOPROLOL TARTRATE
  7. AMLODIPINE [Concomitant]
     Active Substance: AMLODIPINE BESYLATE
  8. ISOSORBIDE MONITRATE [Concomitant]
  9. BUMETANIDE. [Concomitant]
     Active Substance: BUMETANIDE
  10. LANTUS [Concomitant]
     Active Substance: INSULIN GLARGINE
  11. POTASSIUM CHLORIDE. [Concomitant]
     Active Substance: POTASSIUM CHLORIDE
  12. DELFLEX [Suspect]
     Active Substance: CALCIUM CHLORIDE\DEXTROSE MONOHYDRATE\MAGNESIUM CHLORIDE\SODIUM CHLORIDE\SODIUM LACTATE
     Indication: CHRONIC KIDNEY DISEASE
     Dosage: PERITONEAL DIALYSIS
     Dates: start: 20140728, end: 20141127
  13. NITROSTATE [Concomitant]

REACTIONS (1)
  - Death [None]

NARRATIVE: CASE EVENT DATE: 20141127
